FAERS Safety Report 8377697-7 (Version None)
Quarter: 2012Q2

REPORT INFORMATION
  Report Type: 
  Country: None (occurrence: None)
  Receive Date: 20120522
  Receipt Date: 20120516
  Transmission Date: 20120825
  Serious: Yes (Death, Life-Threatening, Hospitalization, Disabling, Congenital Anomaly, Other)
  Sender: FDA-Public Use
  Company Number: US-GLAXOSMITHKLINE-A0967024A

PATIENT
  Age: 15 Year
  Sex: Male
  Weight: 46 kg

DRUGS (3)
  1. FLOLAN [Suspect]
     Indication: VENTRICULAR SEPTAL DEFECT
     Dosage: 59NGKM SEE DOSAGE TEXT
     Route: 042
     Dates: start: 20020909, end: 20120416
  2. TRACLEER [Concomitant]
     Indication: PULMONARY HYPERTENSION
     Dosage: 62.5MG TWICE PER DAY
     Dates: start: 20100601, end: 20120412
  3. REVATIO [Concomitant]
     Indication: PULMONARY HYPERTENSION
     Dosage: 20MG THREE TIMES PER DAY
     Dates: start: 20090401, end: 20120412

REACTIONS (4)
  - ELECTROLYTE IMBALANCE [None]
  - PULMONARY HYPERTENSION [None]
  - RIGHT VENTRICULAR FAILURE [None]
  - OFF LABEL USE [None]
